FAERS Safety Report 13683011 (Version 2)
Quarter: 2017Q3

REPORT INFORMATION
  Report Type: Report from Study
  Country: US (occurrence: US)
  Receive Date: 20170623
  Receipt Date: 20170831
  Transmission Date: 20171127
  Serious: No
  Sender: FDA-Public Use
  Company Number: US-009507513-1706USA006035

PATIENT
  Age: 31 Year
  Sex: Female
  Weight: 105.67 kg

DRUGS (6)
  1. IMPLANON [Suspect]
     Active Substance: ETONOGESTREL
     Indication: BACK PAIN
  2. IMPLANON [Suspect]
     Active Substance: ETONOGESTREL
     Indication: VAGINAL HAEMORRHAGE
  3. IMPLANON [Suspect]
     Active Substance: ETONOGESTREL
     Indication: HEADACHE
  4. IMPLANON [Suspect]
     Active Substance: ETONOGESTREL
     Indication: HOT FLUSH
     Dosage: 1 IMPLANT FOR 3 YEARS
     Route: 059
  5. IMPLANON [Suspect]
     Active Substance: ETONOGESTREL
     Indication: BREAST PAIN
  6. IMPLANON [Suspect]
     Active Substance: ETONOGESTREL
     Indication: ABDOMINAL PAIN
     Dosage: 1 IMPLANT FOR 3 YEARS
     Route: 059
     Dates: start: 20170421

REACTIONS (2)
  - Diarrhoea [Not Recovered/Not Resolved]
  - Drug ineffective for unapproved indication [Not Recovered/Not Resolved]

NARRATIVE: CASE EVENT DATE: 20170610
